FAERS Safety Report 14449198 (Version 4)
Quarter: 2019Q1

REPORT INFORMATION
  Report Type: Report from Study
  Country: US (occurrence: US)
  Receive Date: 20180127
  Receipt Date: 20190331
  Transmission Date: 20190417
  Serious: Yes (Other)
  Sender: FDA-Public Use
  Company Number: PHHY2016US019569

PATIENT
  Age: 36 Year
  Sex: Female

DRUGS (8)
  1. GILENYA [Suspect]
     Active Substance: FINGOLIMOD HYDROCHLORIDE
     Indication: MULTIPLE SCLEROSIS
     Dosage: UNK, QD
     Route: 048
  2. LIDOCAINE. [Concomitant]
     Active Substance: LIDOCAINE
     Indication: LOCAL ANAESTHESIA
     Dosage: UNK
     Route: 065
     Dates: start: 20181107, end: 20181120
  3. HEPARIN [Concomitant]
     Active Substance: HEPARIN SODIUM
     Indication: ANTICOAGULANT THERAPY
     Dosage: UNK
     Route: 065
     Dates: start: 20181228, end: 20181231
  4. ALBUMIN [Concomitant]
     Active Substance: ALBUMIN HUMAN
     Indication: MULTIPLE SCLEROSIS RELAPSE
     Dosage: UNK
     Route: 065
     Dates: start: 20181109, end: 20181109
  5. PANTOPRAZOL [Concomitant]
     Active Substance: PANTOPRAZOLE SODIUM
     Indication: PROPHYLAXIS
     Dosage: UNK
     Route: 065
     Dates: start: 20181106, end: 20190129
  6. HYDROCHLOROTHIAZID [Concomitant]
     Active Substance: HYDROCHLOROTHIAZIDE
     Indication: PRODUCT USED FOR UNKNOWN INDICATION
     Dosage: UNK
     Route: 065
     Dates: start: 20181107
  7. HUMALOG [Concomitant]
     Active Substance: INSULIN LISPRO
     Indication: DIABETES MELLITUS
     Dosage: UNK
     Route: 065
     Dates: start: 20181107
  8. ACETAMINOPHEN. [Concomitant]
     Active Substance: ACETAMINOPHEN
     Indication: PAIN
     Dosage: UNK
     Route: 065
     Dates: start: 20181106, end: 20190123

REACTIONS (20)
  - Blood glucose increased [Not Recovered/Not Resolved]
  - Papule [Unknown]
  - Pancreatic cyst [Not Recovered/Not Resolved]
  - Constipation [Unknown]
  - Vision blurred [Not Recovered/Not Resolved]
  - Syncope [Recovered/Resolved]
  - Rash erythematous [Recovered/Resolved]
  - Lymphocyte count decreased [Unknown]
  - Type 2 diabetes mellitus [Not Recovered/Not Resolved]
  - Nausea [Unknown]
  - Visual field defect [Unknown]
  - Hyperglycaemia [Unknown]
  - White blood cell count increased [Unknown]
  - Headache [Unknown]
  - White blood cell count decreased [Unknown]
  - Polyuria [Unknown]
  - Polydipsia [Unknown]
  - Seizure [Recovered/Resolved]
  - Dizziness postural [Recovered/Resolved]
  - Vomiting [Unknown]

NARRATIVE: CASE EVENT DATE: 20151209
